FAERS Safety Report 24418577 (Version 2)
Quarter: 2024Q4

REPORT INFORMATION
  Report Type: Spontaneous
  Country: US (occurrence: US)
  Receive Date: 20241009
  Receipt Date: 20241104
  Transmission Date: 20250115
  Serious: Yes (Life-Threatening, Hospitalization)
  Sender: TEVA
  Company Number: US-TEVA-VS-3251426

PATIENT
  Age: 43 Year
  Sex: Female

DRUGS (2)
  1. DEXAMETHASONE [Suspect]
     Active Substance: DEXAMETHASONE
     Indication: Immune thrombocytopenia
     Route: 065
  2. HUMAN IMMUNOGLOBULIN G [Suspect]
     Active Substance: HUMAN IMMUNOGLOBULIN G
     Indication: Heavy menstrual bleeding
     Dosage: ON DAYS 2 AND 4 OF ADMISSION
     Route: 042

REACTIONS (3)
  - Bradycardia [Unknown]
  - Drug ineffective [Unknown]
  - Cardiac arrest [Unknown]
